FAERS Safety Report 23768439 (Version 1)
Quarter: 2024Q2

REPORT INFORMATION
  Report Type: Spontaneous
  Country: US (occurrence: US)
  Receive Date: 20240422
  Receipt Date: 20240422
  Transmission Date: 20240716
  Serious: No
  Sender: FDA-Public Use
  Company Number: US-MELINTA THERAPEUTICS, LLC-US-MLNT-23-00567

PATIENT
  Sex: Female
  Weight: 45.8 kg

DRUGS (6)
  1. METOPROLOL SUCCINATE [Suspect]
     Active Substance: METOPROLOL SUCCINATE
     Indication: Product used for unknown indication
     Dosage: 50 MILLIGRAM, QD
     Route: 048
     Dates: start: 20230710
  2. TAGRISSO [Suspect]
     Active Substance: OSIMERTINIB
     Indication: Chemotherapy
     Dosage: 1 TABLET BY MOUTH EVERY DAY FOR 30 DAYS
     Route: 048
     Dates: start: 20210915
  3. TAGRISSO [Suspect]
     Active Substance: OSIMERTINIB
     Indication: Lung adenocarcinoma stage IV
     Dosage: 1 TABLET BY MOUTH EVERY DAY FOR 30 DAYS
     Route: 048
     Dates: start: 20230804
  4. ACETAMINOPHEN [Concomitant]
     Active Substance: ACETAMINOPHEN
     Indication: Product used for unknown indication
     Dosage: 2 TABLETS 2 TIMES A DAY AS NEEDED
     Route: 048
  5. ALBUTEROL SULFATE [Concomitant]
     Active Substance: ALBUTEROL SULFATE
     Indication: Wheezing
     Dosage: 2 PUFFS EVERY 6 HOURS AS NEEDED
     Route: 055
  6. PREDNISONE [Concomitant]
     Active Substance: PREDNISONE
     Indication: Product used for unknown indication
     Dosage: 1 TABLET EVERY OTHER DAY
     Route: 048
     Dates: start: 20230907

REACTIONS (7)
  - Blood creatinine increased [Unknown]
  - Blood glucose increased [Unknown]
  - Glomerular filtration rate decreased [Unknown]
  - Cardiac disorder [Unknown]
  - Cough [Recovering/Resolving]
  - Musculoskeletal chest pain [Unknown]
  - Weight increased [Unknown]
